FAERS Safety Report 24395496 (Version 1)
Quarter: 2024Q4

REPORT INFORMATION
  Report Type: Spontaneous
  Country: US (occurrence: US)
  Receive Date: 20241004
  Receipt Date: 20241004
  Transmission Date: 20250115
  Serious: Yes (Other)
  Sender: SANOFI AVENTIS
  Company Number: US-SA-2024SA284728

PATIENT
  Age: 23 Year
  Sex: Male

DRUGS (2)
  1. ELOCTATE [Suspect]
     Active Substance: EFMOROCTOCOG ALFA
     Indication: Factor VIII deficiency
     Dosage: 4000 UNITS (3600-4400) SLOW IV PUSH FOR BREAKTHROUGH BLEEDING ON
     Route: 042
  2. ELOCTATE [Suspect]
     Active Substance: EFMOROCTOCOG ALFA
     Indication: Factor VIII deficiency
     Dosage: 4000 UNITS (3600-4400) SLOW IV PUSH FOR BREAKTHROUGH BLEEDING ON
     Route: 042

REACTIONS (1)
  - Chest injury [Unknown]

NARRATIVE: CASE EVENT DATE: 20240810
